FAERS Safety Report 19320037 (Version 1)
Quarter: 2021Q2

REPORT INFORMATION
  Report Type: Spontaneous
  Country: US (occurrence: US)
  Receive Date: 20210528
  Receipt Date: 20210528
  Transmission Date: 20210717
  Serious: Yes (Death)
  Sender: FDA-Public Use
  Company Number: None

PATIENT
  Age: 73 Year
  Sex: Male
  Weight: 95 kg

DRUGS (1)
  1. REMDESIVIR (REMDESIVIR 100MG/VIAL INJ) [Suspect]
     Active Substance: REMDESIVIR
     Indication: COVID-19
     Route: 042
     Dates: start: 20200919, end: 20200925

REACTIONS (1)
  - Death [None]

NARRATIVE: CASE EVENT DATE: 20200926
